FAERS Safety Report 7357788-X (Version None)
Quarter: 2011Q1

REPORT INFORMATION
  Report Type: 
  Country: None (occurrence: None)
  Receive Date: 20110314
  Receipt Date: 20110314
  Transmission Date: 20110831
  Serious: Yes (Hospitalization)
  Sender: FDA-Public Use
  Company Number: None

PATIENT
  Age: 64 Year
  Sex: Male
  Weight: 84 kg

DRUGS (2)
  1. TACROLIMUS [Suspect]
     Indication: HEART TRANSPLANT
     Dosage: 2 MG BID PO
     Route: 048
     Dates: start: 20101015
  2. COLCHICINE [Suspect]
     Indication: GOUT
     Dates: start: 20101126, end: 20101127

REACTIONS (1)
  - DIARRHOEA [None]
